FAERS Safety Report 4582196-4 (Version None)
Quarter: 2005Q1

REPORT INFORMATION
  Report Type: 
  Country: None (occurrence: None)
  Receive Date: 20050214
  Receipt Date: 20050209
  Transmission Date: 20050727
  Serious: Yes (Other)
  Sender: FDA-Public Use
  Company Number: 004105

PATIENT
  Sex: Female

DRUGS (5)
  1. MEDROXYPROGESTERONE ACETATE [Suspect]
  2. ESTRADIOL [Suspect]
  3. ESTRACE [Suspect]
  4. PROVERA [Suspect]
  5. PREMARIN [Suspect]

REACTIONS (1)
  - BREAST CANCER FEMALE [None]
